FAERS Safety Report 9997303 (Version 1)
Quarter: 2014Q1

REPORT INFORMATION
  Report Type: Spontaneous
  Country: US (occurrence: None)
  Receive Date: 20140218
  Receipt Date: 20140218
  Transmission Date: 20141002
  Serious: Yes (Other)
  Sender: FDA-Public Use
  Company Number: 1000051571

PATIENT
  Age: 31 Year
  Sex: Female

DRUGS (8)
  1. VIIBRYD [Suspect]
     Indication: MAJOR DEPRESSION
     Route: 048
     Dates: start: 201206, end: 2012
  2. VIIBRYD [Suspect]
     Indication: ANXIETY
     Route: 048
     Dates: start: 201206, end: 2012
  3. VIIBRYD (VILAZODONE HYDROCHLORIDE) (TABLETS) [Suspect]
     Indication: MAJOR DEPRESSION
     Route: 048
     Dates: end: 20131115
  4. VIIBRYD (VILAZODONE HYDROCHLORIDE) (TABLETS) [Suspect]
     Indication: ANXIETY
     Route: 048
     Dates: end: 20131115
  5. ESCITALOPRAM (ESCITALOPRAM) [Suspect]
     Indication: MAJOR DEPRESSION
     Dates: start: 201311
  6. ESCITALOPRAM (ESCITALOPRAM) [Suspect]
     Indication: ANXIETY
     Dates: start: 201311
  7. WELLBUTRIN (BUPROPION HYDROCHLORIDE) (BUPROPION HYDROCHLORIDE) [Concomitant]
  8. VITAMIN B12 (VITAMIN B12) (VITAMIN B12) [Concomitant]

REACTIONS (9)
  - Menstruation irregular [None]
  - Disturbance in attention [None]
  - Nervousness [None]
  - Anxiety [None]
  - Night sweats [None]
  - Tremor [None]
  - Dizziness [None]
  - Off label use [None]
  - Drug ineffective [None]
